FAERS Safety Report 15143622 (Version 4)
Quarter: 2025Q1

REPORT INFORMATION
  Report Type: Spontaneous
  Country: CA (occurrence: CA)
  Receive Date: 20180713
  Receipt Date: 20250121
  Transmission Date: 20250408
  Serious: Yes (Other)
  Sender: MERCK
  Company Number: CA-009507513-1807CAN005205

PATIENT

DRUGS (2)
  1. CUBICIN [Suspect]
     Active Substance: DAPTOMYCIN
  2. LINEZOLID [Suspect]
     Active Substance: LINEZOLID

REACTIONS (1)
  - Drug resistance [Unknown]
